FAERS Safety Report 5278851-3 (Version None)
Quarter: 2007Q1

REPORT INFORMATION
  Report Type: 
  Country: None (occurrence: None)
  Receive Date: 20070328
  Receipt Date: 20070322
  Transmission Date: 20070707
  Serious: Yes (Hospitalization)
  Sender: FDA-Public Use
  Company Number: JP-MERCK-0703USA03550

PATIENT
  Age: 93 Year
  Sex: Male

DRUGS (5)
  1. SINGULAIR [Suspect]
     Indication: ASTHMA
     Route: 048
     Dates: start: 20070123, end: 20070307
  2. AMPICILLIN SODIUM AND SULBACTAM SODIUM [Suspect]
     Indication: PNEUMONIA
     Route: 041
     Dates: start: 20070214, end: 20070221
  3. TOFRANIL [Concomitant]
     Indication: DEPRESSIVE SYMPTOM
     Route: 048
     Dates: end: 20070307
  4. [THERAPY UNSPECIFIED] [Concomitant]
     Indication: PRODUCTIVE COUGH
     Route: 048
     Dates: end: 20070307
  5. ERYTHROMYCIN [Concomitant]
     Indication: SINUSITIS
     Route: 065
     Dates: end: 20070307

REACTIONS (5)
  - DIET REFUSAL [None]
  - HAEMORRHAGE [None]
  - OESOPHAGEAL CANDIDIASIS [None]
  - PLATELET COUNT DECREASED [None]
  - PNEUMONIA [None]
